FAERS Safety Report 8923385 (Version 2)
Quarter: 2012Q4

REPORT INFORMATION
  Report Type: 
  Country: JP (occurrence: JP)
  Receive Date: 20121123
  Receipt Date: 20121207
  Transmission Date: 20130627
  Serious: Yes (Other)
  Sender: FDA-Public Use
  Company Number: PHHY2012JP105828

PATIENT
  Age: 41 Year
  Sex: Female
  Weight: 55 kg

DRUGS (13)
  1. CLOZARIL [Suspect]
     Indication: SCHIZOPHRENIA
     Dosage: 600 mg, UNK
     Route: 048
     Dates: start: 20110302, end: 20110412
  2. CLOZARIL [Suspect]
     Dosage: 500 mg, UNK
     Route: 048
     Dates: start: 20110413, end: 20110419
  3. CLOZARIL [Suspect]
     Dosage: 400 mg, UNK
     Route: 048
     Dates: start: 20110420, end: 20110511
  4. CLOZARIL [Suspect]
     Dosage: 500 mg, UNK
     Route: 048
     Dates: start: 20110512, end: 20110517
  5. CLOZARIL [Suspect]
     Dosage: 600 mg, UNK
     Route: 048
     Dates: start: 20110518, end: 20110601
  6. ZOPICLONE [Concomitant]
     Indication: SCHIZOPHRENIA
     Dosage: 7.5 mg, UNK
     Route: 048
     Dates: start: 20110302
  7. QUAZEPAM [Concomitant]
     Indication: SCHIZOPHRENIA
     Dosage: 15 mg, UNK
     Route: 048
     Dates: start: 20110302
  8. TRIHEXYPHENIDYL HYDROCHLORIDE [Concomitant]
     Indication: SCHIZOPHRENIA
     Dosage: 2 mg, UNK
     Route: 048
     Dates: start: 20110302, end: 20110310
  9. DIAZEPAM [Concomitant]
     Indication: SCHIZOPHRENIA
     Dosage: 6 mg, UNK
     Route: 048
     Dates: start: 20110302
  10. DIAZEPAM [Concomitant]
     Dosage: 5 mg, UNK
     Route: 048
  11. DIAZEPAM [Concomitant]
     Dosage: 10 mg, UNK
     Route: 048
  12. SODIUM VALPROATE [Concomitant]
     Indication: SCHIZOPHRENIA
     Dosage: 400 mg, UNK
     Route: 048
     Dates: start: 20110509
  13. SODIUM VALPROATE [Concomitant]
     Dosage: 600 mg, UNK
     Route: 048

REACTIONS (3)
  - Hallucination [Not Recovered/Not Resolved]
  - Paranoia [Not Recovered/Not Resolved]
  - Epilepsy [Unknown]
